FAERS Safety Report 7951436-3 (Version None)
Quarter: 2011Q4

REPORT INFORMATION
  Report Type: 
  Country: None (occurrence: None)
  Receive Date: 20111201
  Receipt Date: 20111122
  Transmission Date: 20120403
  Serious: Yes (Life-Threatening, Hospitalization)
  Sender: FDA-Public Use
  Company Number: US-BAYER-2011-045315

PATIENT
  Age: 45 Year
  Sex: Female
  Weight: 127 kg

DRUGS (6)
  1. YASMIN [Suspect]
     Dosage: UNK
     Dates: start: 20080524
  2. VAZOTAN [Concomitant]
     Dosage: UNK
     Dates: start: 20080425
  3. YASMIN [Suspect]
     Dosage: UNK
     Dates: start: 20070209, end: 20070914
  4. YASMIN [Suspect]
     Dosage: UNK
     Dates: start: 20080317, end: 20080425
  5. YASMIN [Suspect]
     Indication: MENSTRUATION IRREGULAR
     Dosage: UNK
     Dates: start: 20021027, end: 20040604
  6. PHENTERMINE [Concomitant]
     Dosage: 37.5 MG, QD
     Route: 048
     Dates: start: 20070209, end: 20080514

REACTIONS (9)
  - DEEP VEIN THROMBOSIS [None]
  - PAIN [None]
  - PULMONARY EMBOLISM [None]
  - FEAR [None]
  - EMOTIONAL DISTRESS [None]
  - ANXIETY [None]
  - ANHEDONIA [None]
  - PAIN IN EXTREMITY [None]
  - INJURY [None]
